FAERS Safety Report 7341156-0 (Version None)
Quarter: 2011Q1

REPORT INFORMATION
  Report Type: 
  Country: None (occurrence: None)
  Receive Date: 20110309
  Receipt Date: 20110302
  Transmission Date: 20110831
  Serious: Yes (Other)
  Sender: FDA-Public Use
  Company Number: B0578268B

PATIENT
  Sex: Female
  Weight: 63 kg

DRUGS (8)
  1. EPIRUBICIN [Suspect]
     Indication: BREAST CANCER
     Dosage: 158MG EVERY 3 WEEKS
     Route: 042
     Dates: start: 20090525, end: 20090727
  2. CYCLOPHOSPHAMIDE [Suspect]
     Indication: BREAST CANCER
     Dosage: 1056MG EVERY 3 WEEKS
     Route: 042
     Dates: start: 20090525, end: 20090727
  3. THYRONAJOD [Concomitant]
     Dosage: 50MG PER DAY
  4. LAPATINIB [Suspect]
     Indication: BREAST CANCER
     Dosage: 1250MG PER DAY
     Route: 048
     Dates: start: 20090525, end: 20091019
  5. DOCETAXEL [Suspect]
     Indication: BREAST CANCER
     Dosage: 171MG EVERY 3 WEEKS
     Route: 042
     Dates: start: 20090817, end: 20091005
  6. OMEPRAZOLE [Concomitant]
     Dosage: 20MG PER DAY
  7. RAMIPRIL [Concomitant]
     Dosage: 10MG PER DAY
  8. INSULIN [Concomitant]

REACTIONS (4)
  - PALMAR-PLANTAR ERYTHRODYSAESTHESIA SYNDROME [None]
  - SWELLING [None]
  - BLISTER [None]
  - RASH [None]
